FAERS Safety Report 22388037 (Version 3)
Quarter: 2023Q2

REPORT INFORMATION
  Report Type: Spontaneous
  Country: GB (occurrence: GB)
  Receive Date: 20230531
  Receipt Date: 20230622
  Transmission Date: 20230721
  Serious: Yes (Other)
  Sender: FDA-Public Use
  Company Number: GB-RELONP-2023SCRC047202

PATIENT
  Age: 61 Year
  Sex: Female

DRUGS (1)
  1. ALENDRONIC ACID [Suspect]
     Active Substance: ALENDRONIC ACID
     Indication: Osteoporosis
     Dosage: TAKEN IN THE MORNING, SITTING UPRIGHT FOR AN HOUR
     Route: 048
     Dates: start: 20221106, end: 20230430

REACTIONS (12)
  - Sudden onset of sleep [Recovering/Resolving]
  - Oral mucosal exfoliation [Not Recovered/Not Resolved]
  - Anxiety [Not Recovered/Not Resolved]
  - Tooth disorder [Recovering/Resolving]
  - Bruxism [Recovering/Resolving]
  - Blister [Recovering/Resolving]
  - Neck pain [Recovering/Resolving]
  - Gingival disorder [Recovering/Resolving]
  - Headache [Recovering/Resolving]
  - Arthralgia [Recovering/Resolving]
  - Alopecia [Recovering/Resolving]
  - Myalgia [Recovering/Resolving]
